FAERS Safety Report 4997856-0 (Version None)
Quarter: 2006Q2

REPORT INFORMATION
  Report Type: 
  Country: None (occurrence: None)
  Receive Date: 20060505
  Receipt Date: 20060505
  Transmission Date: 20061013
  Serious: Yes (Life-Threatening, Disabling, Other)
  Sender: FDA-Public Use
  Company Number: None

PATIENT
  Sex: Male
  Weight: 144.2439 kg

DRUGS (2)
  1. KETEK [Suspect]
     Indication: UPPER RESPIRATORY TRACT INFECTION
     Dosage: SEE IMAGE
     Route: 048
     Dates: start: 20050310
  2. KETEK [Suspect]
     Indication: UPPER RESPIRATORY TRACT INFECTION
     Dosage: SEE IMAGE
     Route: 048
     Dates: start: 20050321

REACTIONS (3)
  - ASCITES [None]
  - HEPATIC CIRRHOSIS [None]
  - HEPATIC FAILURE [None]
